FAERS Safety Report 9049950 (Version 2)
Quarter: 2013Q1

REPORT INFORMATION
  Report Type: Spontaneous
  Country: US (occurrence: US)
  Receive Date: 20130205
  Receipt Date: 20130320
  Transmission Date: 20140127
  Serious: Yes (Hospitalization, Other)
  Sender: FDA-Public Use
  Company Number: US-ASTELLAS-2013US001227

PATIENT
  Age: 55 None
  Sex: Male

DRUGS (2)
  1. TARCEVA [Suspect]
     Indication: NON-SMALL CELL LUNG CANCER STAGE IV
     Dosage: 150 MG, UID/QD
     Route: 048
     Dates: start: 201301
  2. LORAZEPAM [Suspect]
     Indication: ANXIETY
     Dosage: 0.5 MG, TID
     Route: 048

REACTIONS (5)
  - Suicidal ideation [Unknown]
  - Ataxia [Unknown]
  - Depression [Unknown]
  - Anxiety [Unknown]
  - Malignant neoplasm progression [Unknown]
